FAERS Safety Report 13353861 (Version 3)
Quarter: 2017Q2

REPORT INFORMATION
  Report Type: Spontaneous
  Country: US (occurrence: US)
  Receive Date: 20170321
  Receipt Date: 20170512
  Transmission Date: 20170830
  Serious: Yes (Other)
  Sender: FDA-Public Use
  Company Number: US-PFIZER INC-2017036059

PATIENT
  Age: 44 Year
  Sex: Female

DRUGS (11)
  1. TRAMADOL. [Concomitant]
     Active Substance: TRAMADOL
     Indication: PAIN IN EXTREMITY
     Dosage: 50 MG, AS NEEDED (50MG TABLET BY MOUTH 4 TIMES A DAY AS NEEDED)
     Route: 048
     Dates: start: 2016
  2. LYRICA [Suspect]
     Active Substance: PREGABALIN
     Indication: PERONEAL NERVE PALSY
  3. OXYCODONE [Concomitant]
     Active Substance: OXYCODONE
     Indication: PAIN IN EXTREMITY
     Dosage: 10 MG, FOUR TIMES A DAY AS NEEDED
     Route: 048
     Dates: start: 201110
  4. TRAMADOL. [Concomitant]
     Active Substance: TRAMADOL
     Indication: TOOTH ABSCESS
     Dosage: UNK
     Dates: start: 20170327, end: 20170330
  5. TYLENOL [Concomitant]
     Active Substance: ACETAMINOPHEN
     Indication: PAIN IN EXTREMITY
     Dosage: 1 DF, AS NEEDED (ONE TABLET BY MOUTH 4 TIMES A DAY AS NEEDED)
     Route: 048
     Dates: start: 201701
  6. LYRICA [Suspect]
     Active Substance: PREGABALIN
     Indication: NEUROPATHY PERIPHERAL
     Dosage: 225 MG, 2X/DAY
     Route: 048
  7. LYRICA [Suspect]
     Active Substance: PREGABALIN
     Indication: PERONEAL NERVE INJURY
  8. LYRICA [Suspect]
     Active Substance: PREGABALIN
     Indication: NEURALGIA
  9. OXYCODONE [Concomitant]
     Active Substance: OXYCODONE
     Indication: PERONEAL NERVE INJURY
     Dosage: UNK
     Dates: start: 20170412, end: 20170415
  10. LYRICA [Suspect]
     Active Substance: PREGABALIN
     Indication: SPINAL CORD INJURY
     Dosage: 225 MG, 2X/DAY (225MG CAPSULE BY MOUTH TWICE A DAY)
     Route: 048
     Dates: start: 2013, end: 20170117
  11. PEN-VEE K [Concomitant]
     Active Substance: PENICILLIN V POTASSIUM
     Indication: TOOTH ABSCESS
     Dosage: UNK
     Dates: start: 20170327, end: 20170406

REACTIONS (2)
  - Bedridden [Unknown]
  - Drug use disorder [Unknown]
